FAERS Safety Report 9648170 (Version 2)
Quarter: 2013Q4

REPORT INFORMATION
  Report Type: Report from Study
  Country: DK (occurrence: DK)
  Receive Date: 20131028
  Receipt Date: 20131030
  Transmission Date: 20140711
  Serious: Yes (Hospitalization)
  Sender: FDA-Public Use
  Company Number: PHHO2013DK013760

PATIENT
  Sex: 0

DRUGS (4)
  1. CGS 20267 [Suspect]
     Indication: BREAST CANCER
     Dosage: 2.5 MG, DAILY
     Route: 048
     Dates: start: 20120308
  2. CORDARONE [Concomitant]
     Dosage: 800 MG, UNK
     Route: 048
     Dates: start: 20130719, end: 20130728
  3. CORDARONE [Concomitant]
     Dosage: 200 MG, UNK
     Route: 048
     Dates: start: 20130729
  4. SELOZOK [Concomitant]
     Dosage: 200 MG, UNK
     Route: 048
     Dates: start: 20130719

REACTIONS (1)
  - Atrial fibrillation [Recovered/Resolved]
